FAERS Safety Report 7962596-2 (Version None)
Quarter: 2011Q4

REPORT INFORMATION
  Report Type: 
  Country: None (occurrence: None)
  Receive Date: 20111207
  Receipt Date: 20111202
  Transmission Date: 20120403
  Serious: Yes (Death)
  Sender: FDA-Public Use
  Company Number: DK-PFIZER INC-2011295487

PATIENT
  Age: 62 Year
  Sex: Male

DRUGS (1)
  1. CELECOXIB [Suspect]
     Indication: OSTEOARTHRITIS
     Dosage: 200 MG, 1X/DAY
     Route: 048
     Dates: start: 20111117, end: 20111201

REACTIONS (3)
  - OSTEOARTHRITIS [None]
  - TYPE 2 DIABETES MELLITUS [None]
  - BRONCHITIS CHRONIC [None]
